FAERS Safety Report 21016993 (Version 2)
Quarter: 2022Q3

REPORT INFORMATION
  Report Type: Report from Study
  Country: US (occurrence: None)
  Receive Date: 20220628
  Receipt Date: 20220711
  Transmission Date: 20221027
  Serious: Yes (Death, Hospitalization)
  Sender: FDA-Public Use
  Company Number: US-ROCHE-3123385

PATIENT
  Age: 65 Year
  Sex: Female
  Weight: 79.4 kg

DRUGS (25)
  1. ATEZOLIZUMAB [Suspect]
     Active Substance: ATEZOLIZUMAB
     Indication: Small cell lung cancer
     Route: 041
     Dates: start: 20220510
  2. CISPLATIN [Suspect]
     Active Substance: CISPLATIN
     Indication: Small cell lung cancer
     Dosage: LAST ADMINISTERED DATE 11-MAY-2022
     Route: 065
     Dates: start: 20220509
  3. ETOPOSIDE [Suspect]
     Active Substance: ETOPOSIDE
     Indication: Small cell lung cancer
     Dosage: LAST ADMINISTERED DATE 11-MAY-2022
     Route: 065
     Dates: start: 20220509
  4. ACETAMINOPHEN [Concomitant]
     Active Substance: ACETAMINOPHEN
  5. ACYCLOVIR [Concomitant]
     Active Substance: ACYCLOVIR
  6. ALBUTEROL [Concomitant]
     Active Substance: ALBUTEROL
  7. ASCORBIC ACID [Concomitant]
     Active Substance: ASCORBIC ACID
  8. BENZONATATE [Concomitant]
     Active Substance: BENZONATATE
  9. BUPRENORPHINE [Concomitant]
     Active Substance: BUPRENORPHINE
  10. VITAMIN D3 [Concomitant]
     Active Substance: CHOLECALCIFEROL
  11. DOCUSATE [Concomitant]
     Active Substance: DOCUSATE
  12. ESTRADIOL [Concomitant]
     Active Substance: ESTRADIOL
  13. FEXOFENADINE [Concomitant]
     Active Substance: FEXOFENADINE HYDROCHLORIDE
  14. GABAPENTIN [Concomitant]
     Active Substance: GABAPENTIN
  15. GUAIFENESIN [Concomitant]
     Active Substance: GUAIFENESIN
  16. HALOBETASOL PROPIONATE [Concomitant]
     Active Substance: HALOBETASOL PROPIONATE
  17. METHOCARBAMOL [Concomitant]
     Active Substance: METHOCARBAMOL
  18. OXYCODONE [Concomitant]
     Active Substance: OXYCODONE
  19. POLYETHYLENE GLYCOL [Concomitant]
     Active Substance: POLYETHYLENE GLYCOL
  20. PRAVASTATIN [Concomitant]
     Active Substance: PRAVASTATIN
  21. PROCHLORPERAZINE [Concomitant]
     Active Substance: PROCHLORPERAZINE
  22. PROMETHAZINE WITH CODEINE [Concomitant]
     Active Substance: CODEINE PHOSPHATE\PROMETHAZINE HYDROCHLORIDE
  23. PROPRANOLOL [Concomitant]
     Active Substance: PROPRANOLOL HYDROCHLORIDE
  24. RIZATRIPTAN [Concomitant]
     Active Substance: RIZATRIPTAN
  25. VENLAFAXINE [Concomitant]
     Active Substance: VENLAFAXINE HYDROCHLORIDE

REACTIONS (6)
  - Respiratory failure [Fatal]
  - Respiratory distress [Unknown]
  - Cardiac failure congestive [Unknown]
  - Blood sodium decreased [Unknown]
  - Pneumonia [Unknown]
  - Blood creatinine increased [Unknown]

NARRATIVE: CASE EVENT DATE: 20220513
